FAERS Safety Report 8184248-9 (Version None)
Quarter: 2012Q1

REPORT INFORMATION
  Report Type: 
  Country: None (occurrence: None)
  Receive Date: 20120305
  Receipt Date: 20120224
  Transmission Date: 20120608
  Serious: Yes (Other)
  Sender: FDA-Public Use
  Company Number: IT-JNJFOC-20120113355

PATIENT
  Age: 30 Year
  Sex: Male

DRUGS (2)
  1. RISPERDAL [Suspect]
     Indication: MENTAL DISORDER
     Route: 048
     Dates: start: 20120101, end: 20120127
  2. RISPERDAL [Suspect]
     Route: 048
     Dates: start: 20120127, end: 20120127

REACTIONS (2)
  - SELF INJURIOUS BEHAVIOUR [None]
  - ALTERED STATE OF CONSCIOUSNESS [None]
